FAERS Safety Report 7465587-3 (Version None)
Quarter: 2011Q2

REPORT INFORMATION
  Report Type: 
  Country: None (occurrence: None)
  Receive Date: 20110509
  Receipt Date: 20110506
  Transmission Date: 20111010
  Serious: Yes (Other)
  Sender: FDA-Public Use
  Company Number: FR-ROCHE-770705

PATIENT
  Sex: Female
  Weight: 70 kg

DRUGS (6)
  1. BISOPROLOL [Concomitant]
     Indication: HYPERTENSION
     Route: 048
  2. RIVOTRIL [Concomitant]
     Route: 048
  3. COPEGUS [Suspect]
     Indication: HEPATITIS C
     Dosage: FREQUENCY: DAILY
     Route: 048
     Dates: start: 20110214
  4. ATARAX [Concomitant]
     Route: 048
  5. PEGASYS [Suspect]
     Indication: HEPATITIS C
     Route: 058
     Dates: start: 20110214
  6. AMLODIPINE BESYLATE [Concomitant]
     Indication: HYPERTENSION
     Route: 048

REACTIONS (4)
  - NEUTROPENIA [None]
  - SERUM FERRITIN INCREASED [None]
  - CYTOLYTIC HEPATITIS [None]
  - ANAEMIA [None]
